FAERS Safety Report 5284024-0 (Version None)
Quarter: 2007Q2

REPORT INFORMATION
  Report Type: 
  Country: None (occurrence: None)
  Receive Date: 20070402
  Receipt Date: 20070321
  Transmission Date: 20071010
  Serious: Yes (Death)
  Sender: FDA-Public Use
  Company Number: FR-PFIZER INC-2007023792

PATIENT
  Age: 73 Year
  Sex: Male

DRUGS (4)
  1. LYRICA [Suspect]
     Indication: NEURALGIA
  2. LYRICA [Suspect]
     Dates: start: 20060922, end: 20061001
  3. HEXAQUINE [Suspect]
     Indication: NEURALGIA
  4. AMLODIPINE [Concomitant]

REACTIONS (1)
  - CARDIAC ARREST [None]
